FAERS Safety Report 4944670-8 (Version None)
Quarter: 2006Q1

REPORT INFORMATION
  Report Type: 
  Country: None (occurrence: None)
  Receive Date: 20060315
  Receipt Date: 20060308
  Transmission Date: 20060701
  Serious: Yes (Life-Threatening, Other)
  Sender: FDA-Public Use
  Company Number: JP-AVENTIS-200610754JP

PATIENT
  Age: 60 Year
  Sex: Male
  Weight: 60 kg

DRUGS (9)
  1. AMARYL [Suspect]
     Indication: DIABETES MELLITUS
     Route: 048
  2. ACTOS [Concomitant]
     Route: 048
  3. NORVASC [Concomitant]
     Route: 048
  4. BASEN [Concomitant]
     Route: 048
  5. MUCOSTA [Concomitant]
     Dosage: DOSE: 3 TABLETS/DAY
     Route: 048
  6. GASTER [Concomitant]
     Route: 048
  7. DIOVAN [Concomitant]
     Route: 048
  8. VITAMEDIN CAPSULE [Concomitant]
     Dosage: DOSE: 2 CAPSULES/DAY
     Route: 048
  9. KERLONG [Concomitant]
     Route: 048

REACTIONS (4)
  - CARDIO-RESPIRATORY ARREST [None]
  - HYPERGLYCAEMIA [None]
  - OVERDOSE [None]
  - SUICIDE ATTEMPT [None]
